FAERS Safety Report 14824172 (Version 2)
Quarter: 2018Q3

REPORT INFORMATION
  Report Type: Other
  Country: ES (occurrence: ES)
  Receive Date: 20180428
  Receipt Date: 20180710
  Transmission Date: 20181010
  Serious: Yes (Hospitalization)
  Sender: FDA-Public Use
  Company Number: ES-MACLEODS PHARMACEUTICALS US LTD-MAC2018012803

PATIENT

DRUGS (7)
  1. LEVOFLOXACIN. [Suspect]
     Active Substance: LEVOFLOXACIN
     Indication: PLEURAL EFFUSION
     Dosage: 500 MILLIGRAM
     Route: 065
     Dates: start: 20170602, end: 20170626
  2. BEMIPARIN [Suspect]
     Active Substance: BEMIPARIN
     Indication: PROPHYLAXIS
     Dosage: 3500 INTERNATIONAL UNIT, QD
     Route: 058
     Dates: start: 20170622
  3. HALOPERIDOL. [Suspect]
     Active Substance: HALOPERIDOL
     Indication: PRODUCT USED FOR UNKNOWN INDICATION
     Dosage: 10 DROP, QD, 2 MG/ML
     Route: 048
     Dates: start: 20170613
  4. TARGIN [Suspect]
     Active Substance: NALOXONE HYDROCHLORIDE\OXYCODONE HYDROCHLORIDE
     Indication: CAUDA EQUINA SYNDROME
     Dosage: 1 DOSAGE FORM, BID, 10 MG/5 MG 56 PROLONGED RELEASE TABLETS
     Route: 048
     Dates: start: 20170613
  5. DALACIN 300 MG [Suspect]
     Active Substance: CLINDAMYCIN HYDROCHLORIDE
     Indication: PRODUCT USED FOR UNKNOWN INDICATION
     Dosage: 300 MILLIGRAM, HARD CAPSULES, 24 CAPSULES TID
     Route: 048
     Dates: start: 20170609
  6. DULOXETINE 60 MG CAPSULE [Suspect]
     Active Substance: DULOXETINE
     Indication: ADJUSTMENT DISORDER
     Dosage: 60 MILLIGRAM, 28 CAPSULES
     Route: 048
     Dates: start: 20170613, end: 20170625
  7. METOCLOPRAMIDE. [Suspect]
     Active Substance: METOCLOPRAMIDE
     Indication: VOMITING
     Dosage: 10 MILLIGRAM, 30 TABLETS
     Route: 048
     Dates: start: 20170517

REACTIONS (2)
  - Rash maculo-papular [Recovered/Resolved]
  - Pruritus [Recovered/Resolved]

NARRATIVE: CASE EVENT DATE: 20170622
